FAERS Safety Report 5354730-8 (Version None)
Quarter: 2007Q2

REPORT INFORMATION
  Report Type: 
  Country: None (occurrence: None)
  Receive Date: 20070612
  Receipt Date: 20070606
  Transmission Date: 20071010
  Serious: Yes (Other)
  Sender: FDA-Public Use
  Company Number: GB-PFIZER INC-2007046319

PATIENT
  Sex: Male

DRUGS (2)
  1. XALATAN [Suspect]
     Route: 047
  2. BIMATOPROST [Suspect]

REACTIONS (2)
  - DRUG ADMINISTRATION ERROR [None]
  - INTRAOCULAR PRESSURE INCREASED [None]
